FAERS Safety Report 8967156 (Version 4)
Quarter: 2013Q2

REPORT INFORMATION
  Report Type: Spontaneous
  Country: US (occurrence: US)
  Receive Date: 20121214
  Receipt Date: 20130430
  Transmission Date: 20140414
  Serious: Yes (Death, Hospitalization)
  Sender: FDA-Public Use
  Company Number: US-GILEAD-2012-0066339

PATIENT
  Age: 53 Year
  Sex: Female

DRUGS (19)
  1. LETAIRIS [Suspect]
     Indication: PULMONARY ARTERIAL HYPERTENSION
     Dosage: 5 MG, UNK
     Route: 048
     Dates: start: 201009
  2. LETAIRIS [Suspect]
     Indication: SARCOIDOSIS
  3. LETAIRIS [Suspect]
     Indication: INTERSTITIAL LUNG DISEASE
  4. REMODULIN [Concomitant]
  5. LIDODERM [Concomitant]
  6. TRAMADOL [Concomitant]
  7. ZOLOFT [Concomitant]
  8. LOMOTIL [Concomitant]
  9. SYMBICORT [Concomitant]
  10. GABAPENTIN [Concomitant]
  11. XANAX [Concomitant]
  12. NEXIUM                             /01479302/ [Concomitant]
  13. TRAZODONE [Concomitant]
  14. BONIVA [Concomitant]
  15. FENOFIBRATE [Concomitant]
  16. PREDNISONE [Concomitant]
  17. CALCIUM CARBONATE AND VITAMIN D [Concomitant]
  18. POTASSIUM CHLORIDE [Concomitant]
  19. WARFARIN [Concomitant]

REACTIONS (2)
  - Acute lung injury [Fatal]
  - Dyspnoea [Unknown]
